FAERS Safety Report 14656112 (Version 2)
Quarter: 2018Q1

REPORT INFORMATION
  Report Type: Report from Study
  Country: US (occurrence: US)
  Receive Date: 20180319
  Receipt Date: 20180329
  Transmission Date: 20180509
  Serious: Yes (Other)
  Sender: FDA-Public Use
  Company Number: US-JAZZ-2018-US-003859

PATIENT
  Age: 34 Year
  Sex: Female

DRUGS (6)
  1. TRINTELLIX [Concomitant]
     Active Substance: VORTIOXETINE HYDROBROMIDE
  2. ATENOLOL. [Concomitant]
     Active Substance: ATENOLOL
  3. LAMOTRIGINE. [Concomitant]
     Active Substance: LAMOTRIGINE
  4. TRIHEXYPHENIDYL [Concomitant]
     Active Substance: TRIHEXYPHENIDYL
  5. REXULTI [Concomitant]
     Active Substance: BREXPIPRAZOLE
  6. XYREM [Suspect]
     Active Substance: SODIUM OXYBATE
     Indication: NARCOLEPSY
     Dosage: 2.25 G, BID
     Route: 048
     Dates: start: 201802

REACTIONS (4)
  - Sinusitis [Not Recovered/Not Resolved]
  - Bronchitis [Not Recovered/Not Resolved]
  - Lip swelling [Recovered/Resolved]
  - Lip dry [Not Recovered/Not Resolved]

NARRATIVE: CASE EVENT DATE: 20180301
